FAERS Safety Report 4884535-3 (Version None)
Quarter: 2006Q1

REPORT INFORMATION
  Report Type: 
  Country: None (occurrence: None)
  Receive Date: 20060117
  Receipt Date: 20060103
  Transmission Date: 20060701
  Serious: Yes (Death)
  Sender: FDA-Public Use
  Company Number: SUSI-2005-00913

PATIENT
  Age: 27 Year
  Sex: Female

DRUGS (4)
  1. ADDERALL 10 [Suspect]
     Indication: ATTENTION DEFICIT/HYPERACTIVITY DISORDER
     Dosage: 20 MG, 2X/DAY, BID, ORAL
     Route: 048
     Dates: start: 20050501, end: 20051108
  2. ZOLOFT /01011401/(SERTRALINE) [Concomitant]
  3. WELLBUTRIN                                 /00700501/ (BUPROPION) [Concomitant]
  4. LORAZEPAM [Concomitant]

REACTIONS (6)
  - ABORTION INDUCED [None]
  - AMNIOTIC FLUID VOLUME DECREASED [None]
  - DEPRESSION [None]
  - DRUG EXPOSURE BEFORE PREGNANCY [None]
  - DRUG EXPOSURE DURING PREGNANCY [None]
  - WEIGHT DECREASED [None]
